FAERS Safety Report 9758507 (Version 1)
Quarter: 2013Q4

REPORT INFORMATION
  Report Type: Spontaneous
  Country: US (occurrence: None)
  Receive Date: 20131216
  Receipt Date: 20131216
  Transmission Date: 20140711
  Serious: Yes (Hospitalization)
  Sender: FDA-Public Use
  Company Number: CABO-13002721

PATIENT
  Age: 58 Year
  Sex: Male

DRUGS (1)
  1. COMETRIQ [Suspect]
     Indication: THYROID CANCER
     Dosage: UNK MG, QD, ORAL?120 MG, QD, ORAL?100 MG, QD, ORAL?60 MG, QD, ORAL

REACTIONS (1)
  - Pneumonia [None]
